FAERS Safety Report 5755429-6 (Version None)
Quarter: 2008Q2

REPORT INFORMATION
  Report Type: 
  Country: None (occurrence: None)
  Receive Date: 20080529
  Receipt Date: 20080529
  Transmission Date: 20081010
  Serious: Yes (Death)
  Sender: FDA-Public Use
  Company Number: None

PATIENT
  Sex: Male
  Weight: 84.369 kg

DRUGS (1)
  1. DIGITEK  125 MCG  BERTEK [Suspect]
     Indication: CARDIAC DISORDER
     Dosage: 125 MCG  1 TABLET DAILY PO
     Route: 048
     Dates: start: 20071214, end: 20080416

REACTIONS (6)
  - CARDIAC ARREST [None]
  - FATIGUE [None]
  - FLUID IMBALANCE [None]
  - OXYGEN SATURATION DECREASED [None]
  - PHARMACEUTICAL PRODUCT COMPLAINT [None]
  - SWELLING [None]
